FAERS Safety Report 8024440-7 (Version None)
Quarter: 2012Q1

REPORT INFORMATION
  Report Type: 
  Country: None (occurrence: None)
  Receive Date: 20120105
  Receipt Date: 20111230
  Transmission Date: 20120608
  Serious: Yes (Other)
  Sender: FDA-Public Use
  Company Number: PHHY2010FR19676

PATIENT

DRUGS (1)
  1. GLEEVEC [Suspect]
     Indication: CHRONIC MYELOID LEUKAEMIA
     Dosage: FOETAL DRUG EXPOSURE VIA FATHER
     Route: 065
     Dates: start: 20030101

REACTIONS (2)
  - EXPOSURE VIA FATHER [None]
  - JAUNDICE NEONATAL [None]
